FAERS Safety Report 7369482-X (Version None)
Quarter: 2011Q1

REPORT INFORMATION
  Report Type: 
  Country: None (occurrence: None)
  Receive Date: 20110321
  Receipt Date: 20110321
  Transmission Date: 20110831
  Serious: Yes (Hospitalization)
  Sender: FDA-Public Use
  Company Number: None

PATIENT
  Age: 61 Year
  Sex: Male
  Weight: 108.86 kg

DRUGS (1)
  1. PREDNISONE [Suspect]
     Indication: COLITIS ULCERATIVE
     Dates: start: 20110111

REACTIONS (9)
  - NAUSEA [None]
  - SOMNOLENCE [None]
  - VISUAL ACUITY REDUCED [None]
  - LETHARGY [None]
  - DIZZINESS [None]
  - BLOOD GLUCOSE INCREASED [None]
  - HEADACHE [None]
  - WEIGHT DECREASED [None]
  - POLLAKIURIA [None]
